FAERS Safety Report 22015761 (Version 1)
Quarter: 2023Q1

REPORT INFORMATION
  Report Type: Spontaneous
  Country: US (occurrence: None)
  Receive Date: 20230216
  Receipt Date: 20230216
  Transmission Date: 20230418
  Serious: Yes (Hospitalization)
  Sender: FDA-Public Use
  Company Number: None

PATIENT
  Sex: Female

DRUGS (2)
  1. TADALAFIL [Suspect]
     Active Substance: TADALAFIL
     Indication: Pulmonary arterial hypertension
     Dosage: 40MG EVERY DAY BY MOUTH?
     Route: 048
     Dates: start: 202212
  2. AMBRISENTAN [Suspect]
     Active Substance: AMBRISENTAN
     Indication: Pulmonary arterial hypertension
     Dosage: 10MG EVERY DAY BY MOUTH?
     Route: 048
     Dates: start: 20230105

REACTIONS (4)
  - Chronic obstructive pulmonary disease [None]
  - Urticaria [None]
  - Swelling [None]
  - Therapy interrupted [None]
